FAERS Safety Report 15223462 (Version 1)
Quarter: 2018Q3

REPORT INFORMATION
  Report Type: Spontaneous
  Country: US (occurrence: US)
  Receive Date: 20180731
  Receipt Date: 20180731
  Transmission Date: 20181010
  Serious: No
  Sender: FDA-Public Use
  Company Number: US-ENDO PHARMACEUTICALS INC-2017-005383

PATIENT
  Age: 58 Year
  Sex: Male
  Weight: 108.84 kg

DRUGS (1)
  1. TESTOPEL [Suspect]
     Active Substance: TESTOSTERONE
     Indication: BLOOD TESTOSTERONE DECREASED
     Dosage: TEN, 75 MG PELLETS, EVERY 3 MONTHS
     Route: 058
     Dates: start: 20140702

REACTIONS (3)
  - Implant site abscess [Unknown]
  - Prescribed overdose [Not Recovered/Not Resolved]
  - Expulsion of medication [Recovered/Resolved]

NARRATIVE: CASE EVENT DATE: 20140702
